FAERS Safety Report 10416898 (Version 2)
Quarter: 2014Q3

REPORT INFORMATION
  Report Type: Report from Study
  Country: BR (occurrence: BR)
  Receive Date: 20140828
  Receipt Date: 20140903
  Transmission Date: 20150326
  Serious: Yes (Death, Other)
  Sender: FDA-Public Use
  Company Number: BR-ABBVIE-14K-020-1275842-00

PATIENT
  Sex: Male
  Weight: 120 kg

DRUGS (5)
  1. HUMIRA [Suspect]
     Active Substance: ADALIMUMAB
     Indication: RHEUMATOID ARTHRITIS
     Route: 058
     Dates: start: 2009, end: 2011
  2. VASLIP [Concomitant]
     Indication: METABOLIC SYNDROME
     Route: 061
     Dates: start: 2001
  3. GLIFAGE [Concomitant]
     Active Substance: METFORMIN HYDROCHLORIDE
     Indication: METABOLIC SYNDROME
     Route: 048
     Dates: start: 2001
  4. VASLIP [Concomitant]
     Indication: HYPERTENSION
  5. EUTHYROX [Concomitant]
     Active Substance: LEVOTHYROXINE SODIUM
     Indication: HYPOTHYROIDISM
     Route: 048
     Dates: start: 2001

REACTIONS (4)
  - Pulmonary mass [Fatal]
  - Cough [Fatal]
  - Inappropriate schedule of drug administration [Unknown]
  - Lung disorder [Fatal]
